FAERS Safety Report 9244175 (Version 1)
Quarter: 2013Q1

REPORT INFORMATION
  Report Type: Spontaneous
  Country: US (occurrence: None)
  Receive Date: 20121123
  Receipt Date: 20121123
  Transmission Date: 20140127
  Serious: No
  Sender: FDA-Public Use
  Company Number: 362888

PATIENT
  Age: 62 Year
  Sex: Female

DRUGS (10)
  1. VICTOZA [Suspect]
     Indication: TYPE 2 DIABETES MELLITUS
     Route: 058
  2. ASPIRIN (ACETYLSALICYLIC ACID) [Concomitant]
  3. DIOVAN (VALSARTAN) [Concomitant]
  4. DOXYCYCLINE (DOXYCYCLINE) [Concomitant]
  5. LEVOXYL (LEVOTHYROXINE SODIUM) [Concomitant]
  6. OMEPRAZOLE (OMEPRAZOLE) [Concomitant]
  7. OXYBUTIN (OXYBUTYNIN HYDROCHLORIDE) [Concomitant]
  8. REMICADE (INFLIXIMAB) [Concomitant]
  9. SIMVASTATIN (SIMVASTATIN) [Concomitant]
  10. TRAMADOL (TRAMADOL) [Concomitant]

REACTIONS (1)
  - Blood glucose decreased [None]
